FAERS Safety Report 12507382 (Version 2)
Quarter: 2016Q3

REPORT INFORMATION
  Report Type: Report from Study
  Country: JP (occurrence: JP)
  Receive Date: 20160629
  Receipt Date: 20160701
  Transmission Date: 20161109
  Serious: Yes (Death, Life-Threatening, Other)
  Sender: FDA-Public Use
  Company Number: JP-UCBSA-2016024022

PATIENT
  Age: 50 Year
  Sex: Male
  Weight: 50.4 kg

DRUGS (8)
  1. ALEVIATIN [Concomitant]
     Active Substance: PHENYTOIN SODIUM
     Indication: COMPLEX PARTIAL SEIZURES
     Dosage: 250 MG, ONCE DAILY (QD)
     Route: 042
     Dates: start: 20151221, end: 20151221
  2. ALEVIATIN [Concomitant]
     Active Substance: PHENYTOIN SODIUM
     Dosage: 250 MG, ONCE DAILY (QD)
     Route: 042
     Dates: start: 20151223, end: 20151223
  3. FOLIAMIN [Concomitant]
     Active Substance: FOLIC ACID
     Indication: PROPHYLAXIS
     Dosage: 10 MG, ONCE DAILY (QD)
     Route: 048
     Dates: start: 20151228, end: 20160228
  4. LEVETIRACETAM. [Suspect]
     Active Substance: LEVETIRACETAM
     Indication: COMPLEX PARTIAL SEIZURES
     Dosage: 500 MG, 2X/DAY (BID)
     Route: 048
     Dates: start: 20151228, end: 201601
  5. LEVETIRACETAM. [Suspect]
     Active Substance: LEVETIRACETAM
     Dosage: 1000 MG, 2X/DAY (BID)
     Route: 048
     Dates: start: 20160105, end: 201601
  6. LEVETIRACETAM. [Suspect]
     Active Substance: LEVETIRACETAM
     Dosage: 1500 MG, 2X/DAY (BID)
     Route: 048
     Dates: start: 20160112, end: 20160228
  7. ALEVIATIN [Concomitant]
     Active Substance: PHENYTOIN SODIUM
     Dosage: 250 MG, ONCE DAILY (QD)
     Route: 042
     Dates: start: 20160130, end: 20160201
  8. ALEVIATIN [Concomitant]
     Active Substance: PHENYTOIN SODIUM
     Dosage: 250 MG, 2X/DAY (BID)
     Route: 042
     Dates: start: 20160111, end: 20160111

REACTIONS (2)
  - Bacteraemia [Fatal]
  - Shunt infection [Fatal]

NARRATIVE: CASE EVENT DATE: 20160215
